FAERS Safety Report 20925493 (Version 2)
Quarter: 2022Q3

REPORT INFORMATION
  Report Type: Other
  Country: US (occurrence: None)
  Receive Date: 20220607
  Receipt Date: 20220728
  Transmission Date: 20221026
  Serious: No
  Sender: FDA-Public Use
  Company Number: US-ROCHE-3112628

PATIENT
  Sex: Male

DRUGS (1)
  1. OCREVUS [Suspect]
     Active Substance: OCRELIZUMAB
     Indication: Relapsing-remitting multiple sclerosis
     Dosage: INFUSE 300MG DAY 1 AND DAY 15, DATE OF TREATMENT WAS 10/DEC/2021, 07/MAY/2019
     Route: 042
     Dates: start: 20190422

REACTIONS (1)
  - COVID-19 [Unknown]
